FAERS Safety Report 18418983 (Version 4)
Quarter: 2020Q4

REPORT INFORMATION
  Report Type: Spontaneous
  Country: US (occurrence: US)
  Receive Date: 20201023
  Receipt Date: 20201123
  Transmission Date: 20210114
  Serious: No
  Sender: FDA-Public Use
  Company Number: US-ELI_LILLY_AND_COMPANY-US202010007882

PATIENT
  Age: 72 Year
  Sex: Female

DRUGS (7)
  1. GLIPIZIDE. [Concomitant]
     Active Substance: GLIPIZIDE
     Indication: TYPE 2 DIABETES MELLITUS
     Dosage: 0.5 DOSAGE FORM, BID
     Route: 065
  2. HUMULIN N [Suspect]
     Active Substance: INSULIN HUMAN
     Dosage: 12 U, BID
     Route: 058
     Dates: start: 2017
  3. HUMULIN N [Suspect]
     Active Substance: INSULIN HUMAN
     Indication: TYPE 2 DIABETES MELLITUS
     Dosage: 12 U, BID
     Route: 058
     Dates: start: 2017
  4. HUMULIN N [Suspect]
     Active Substance: INSULIN HUMAN
     Indication: TYPE 2 DIABETES MELLITUS
     Dosage: 12 U, BID
     Route: 058
     Dates: start: 2017
  5. HUMULIN N [Suspect]
     Active Substance: INSULIN HUMAN
     Indication: TYPE 2 DIABETES MELLITUS
     Dosage: 12 U, BID
     Route: 058
     Dates: start: 2017
  6. HUMULIN N [Suspect]
     Active Substance: INSULIN HUMAN
     Dosage: 12 U, BID
     Route: 058
     Dates: start: 2017
  7. HUMULIN N [Suspect]
     Active Substance: INSULIN HUMAN
     Dosage: 12 U, BID
     Route: 058
     Dates: start: 2017

REACTIONS (7)
  - Back pain [Not Recovered/Not Resolved]
  - Injection site bruising [Recovering/Resolving]
  - Blood glucose decreased [Recovered/Resolved]
  - Blood glucose increased [Recovered/Resolved]
  - Injection site pain [Unknown]
  - Injection site haemorrhage [Unknown]
  - Incorrect dose administered [Unknown]

NARRATIVE: CASE EVENT DATE: 202010
